FAERS Safety Report 8285842-7 (Version None)
Quarter: 2012Q2

REPORT INFORMATION
  Report Type: 
  Country: None (occurrence: None)
  Receive Date: 20120413
  Receipt Date: 20120405
  Transmission Date: 20120825
  Serious: Yes (Hospitalization, Other)
  Sender: FDA-Public Use
  Company Number: US-ELI_LILLY_AND_COMPANY-US201204002091

PATIENT
  Sex: Female

DRUGS (12)
  1. DANTRIUM [Concomitant]
  2. FLEXERIL [Concomitant]
  3. COLACE [Concomitant]
  4. BACLOFEN [Concomitant]
  5. FOSAMAX [Concomitant]
  6. TIZANIDINE HCL [Concomitant]
  7. LACTULOSE [Concomitant]
  8. LIPITOR [Concomitant]
  9. LEVOSTINE [Concomitant]
  10. RITADINE [Concomitant]
  11. FORTEO [Suspect]
     Indication: OSTEOPOROSIS
     Dosage: 20 UG, QD
     Dates: start: 20120201, end: 20120325
  12. OYSTER SHELL CALCIUM [Concomitant]

REACTIONS (3)
  - LOSS OF CONSCIOUSNESS [None]
  - URINARY TRACT INFECTION [None]
  - NEOPLASM MALIGNANT [None]
